FAERS Safety Report 8250069-1 (Version None)
Quarter: 2012Q2

REPORT INFORMATION
  Report Type: 
  Country: None (occurrence: None)
  Receive Date: 20120402
  Receipt Date: 20111127
  Transmission Date: 20120825
  Serious: Yes (Hospitalization)
  Sender: FDA-Public Use
  Company Number: HU-BAYER-2012-028885

PATIENT
  Age: 48 Year
  Sex: Female
  Weight: 76 kg

DRUGS (8)
  1. AFLAMIN [Concomitant]
     Dosage: 100 MG, QD
     Route: 048
     Dates: start: 20101026
  2. VENTOLIN [Concomitant]
     Dosage: UNK UNK, PRN
     Route: 055
     Dates: start: 20100201
  3. PANTOPRAZOLE [Concomitant]
     Dosage: 20 MG, BID
     Route: 048
     Dates: start: 20100119
  4. AVELOX [Suspect]
     Indication: PNEUMONIA
     Dosage: 400 MG, QD
     Route: 042
     Dates: start: 20110304, end: 20110306
  5. EGIFILIN [Concomitant]
     Dosage: 200 MG, BID
     Dates: start: 20100301
  6. AVELOX [Suspect]
     Dosage: DAILY DOSE 400 MG
     Route: 048
     Dates: start: 20110307, end: 20110311
  7. FLUTICASONE PROPIONATE/SALMETEROL [Concomitant]
     Dosage: 500 ?G, BID
     Route: 055
     Dates: start: 20100201
  8. SPIRIVA [Concomitant]
     Dosage: 18 ?G, QD
     Route: 055
     Dates: start: 20100301

REACTIONS (1)
  - PNEUMONIA [None]
